FAERS Safety Report 7473481-7 (Version None)
Quarter: 2011Q1

REPORT INFORMATION
  Report Type: 
  Country: None (occurrence: None)
  Receive Date: 20110302
  Receipt Date: 20100922
  Transmission Date: 20110831
  Serious: Yes (Other)
  Sender: FDA-Public Use
  Company Number: 163-21880-10061783

PATIENT
  Age: 74 Year
  Sex: Female

DRUGS (14)
  1. PLAVIX [Suspect]
     Indication: PRODUCT USED FOR UNKNOWN INDICATION
  2. VICODIN [Concomitant]
  3. PROTONIX [Concomitant]
  4. TOPROL-XL [Concomitant]
  5. VITAMIN B 12 MICROLOZ (CYANOCOBALAMIN) [Concomitant]
  6. REVLIMID [Suspect]
     Indication: MULTIPLE MYELOMA
     Dosage: 25 MG, 1 IN 1 D, PO; 25 MG, 1 IN 1 D, PO; 5 MG, DAILY X 21 DAYS/OFF 7 DAYS, PO
     Route: 048
     Dates: start: 20080801
  7. REVLIMID [Suspect]
     Indication: MULTIPLE MYELOMA
     Dosage: 25 MG, 1 IN 1 D, PO; 25 MG, 1 IN 1 D, PO; 5 MG, DAILY X 21 DAYS/OFF 7 DAYS, PO
     Route: 048
     Dates: start: 20060901
  8. REVLIMID [Suspect]
     Indication: MULTIPLE MYELOMA
     Dosage: 25 MG, 1 IN 1 D, PO; 25 MG, 1 IN 1 D, PO; 5 MG, DAILY X 21 DAYS/OFF 7 DAYS, PO
     Route: 048
     Dates: start: 20081201
  9. LASIX [Concomitant]
  10. DECADRON [Concomitant]
  11. ALLOPURINOL [Concomitant]
  12. ASPIRIN [Suspect]
     Indication: PRODUCT USED FOR UNKNOWN INDICATION
  13. FENTANYL [Concomitant]
  14. ZOCOR [Concomitant]

REACTIONS (9)
  - WHITE BLOOD CELL COUNT DECREASED [None]
  - PLATELET COUNT DECREASED [None]
  - NEUTROPENIA [None]
  - MUSCLE SPASMS [None]
  - CONDITION AGGRAVATED [None]
  - EPISTAXIS [None]
  - FULL BLOOD COUNT DECREASED [None]
  - FATIGUE [None]
  - OSTEOPENIA [None]
